FAERS Safety Report 17666097 (Version 1)
Quarter: 2020Q2

REPORT INFORMATION
  Report Type: Spontaneous
  Country: US (occurrence: US)
  Receive Date: 20200414
  Receipt Date: 20200414
  Transmission Date: 20200713
  Serious: Yes (Other)
  Sender: FDA-Public Use
  Company Number: None

PATIENT
  Age: 88 Year
  Sex: Male
  Weight: 86.4 kg

DRUGS (1)
  1. ZIEXTENZO [Suspect]
     Active Substance: PEGFILGRASTIM-BMEZ
     Indication: CHEMOTHERAPY
     Dosage: ?          OTHER FREQUENCY:GIVEN W TXMT;?
     Route: 058
     Dates: start: 20200318, end: 20200318

REACTIONS (4)
  - Asthenia [None]
  - Injection site pain [None]
  - Dizziness [None]
  - Presyncope [None]

NARRATIVE: CASE EVENT DATE: 20200318
